FAERS Safety Report 6890847-4 (Version None)
Quarter: 2010Q3

REPORT INFORMATION
  Report Type: 
  Country: None (occurrence: None)
  Receive Date: 20100731
  Receipt Date: 20090327
  Transmission Date: 20110219
  Serious: No
  Sender: FDA-Public Use
  Company Number: US-PFIZER INC-2009162939

PATIENT
  Sex: Male
  Weight: 83 kg

DRUGS (3)
  1. LIPITOR [Suspect]
     Dosage: UNK
  2. INSULIN [Concomitant]
     Indication: DIABETES MELLITUS
     Dosage: UNK
  3. DIOVAN HCT [Concomitant]
     Indication: HYPERTENSION
     Dosage: [VALSARTAN 160 MG]/[HYDROCHLOROTHIAZIDE 12.5 MG] ONCE DAILY

REACTIONS (2)
  - BLOOD TRIGLYCERIDES INCREASED [None]
  - MUSCULAR WEAKNESS [None]
